FAERS Safety Report 8510283-4 (Version None)
Quarter: 2012Q3

REPORT INFORMATION
  Report Type: 
  Country: None (occurrence: None)
  Receive Date: 20120713
  Receipt Date: 20120703
  Transmission Date: 20120928
  Serious: Yes (Hospitalization, Other)
  Sender: FDA-Public Use
  Company Number: FR-BAXTER-2012BAX010327

PATIENT
  Sex: Male

DRUGS (7)
  1. PREDNISONE [Concomitant]
     Route: 065
     Dates: start: 20110301, end: 20110701
  2. CYCLOPHOSPHAMIDE [Suspect]
     Indication: NON-HODGKIN'S LYMPHOMA
     Route: 042
     Dates: start: 20110317, end: 20110707
  3. GLYBURIDE [Concomitant]
     Dosage: 1 TABLET
     Route: 065
  4. ONCOVIN [Suspect]
     Indication: NON-HODGKIN'S LYMPHOMA
     Route: 042
     Dates: start: 20110317, end: 20110707
  5. MABTHERA [Suspect]
     Indication: NON-HODGKIN'S LYMPHOMA
     Route: 042
     Dates: start: 20110317, end: 20110707
  6. DOXORUBICIN HCL [Suspect]
     Indication: NON-HODGKIN'S LYMPHOMA
     Route: 042
     Dates: start: 20110317, end: 20110707
  7. ACARBOSE [Concomitant]
     Dosage: 1/2 TABLET
     Route: 065

REACTIONS (2)
  - NEUTROPENIA [None]
  - NEUROPATHY PERIPHERAL [None]
